FAERS Safety Report 20496648 (Version 3)
Quarter: 2022Q1

REPORT INFORMATION
  Report Type: Report from Study
  Country: CN (occurrence: CN)
  Receive Date: 20220221
  Receipt Date: 20220302
  Transmission Date: 20220423
  Serious: Yes (Other)
  Sender: FDA-Public Use
  Company Number: CN-NOVARTISPH-NVSC2021CN003607

PATIENT
  Age: 37 Year
  Sex: Male

DRUGS (17)
  1. ENTRESTO [Suspect]
     Active Substance: SACUBITRIL\VALSARTAN
     Indication: Cardiac failure chronic
     Dosage: 25 MG
     Route: 048
     Dates: start: 20201120, end: 20201225
  2. ENTRESTO [Suspect]
     Active Substance: SACUBITRIL\VALSARTAN
     Dosage: 50 MG
     Route: 048
     Dates: start: 20201226, end: 20210129
  3. ENTRESTO [Suspect]
     Active Substance: SACUBITRIL\VALSARTAN
     Dosage: 100 MG
     Route: 048
     Dates: start: 20210130
  4. IVABRADINE [Concomitant]
     Active Substance: IVABRADINE
     Indication: Cardiac failure
     Dosage: 2.5 MG
     Route: 048
     Dates: start: 20201125, end: 20201127
  5. ETORICOXIB [Concomitant]
     Active Substance: ETORICOXIB
     Indication: Pre-existing disease
     Dosage: 60 MG
     Route: 065
     Dates: start: 20201022
  6. PHOSPHOLIPID [Concomitant]
     Active Substance: PHOSPHOLIPID
     Indication: Pre-existing disease
     Dosage: 10 ML
     Route: 042
     Dates: start: 20201120
  7. FEBUXOSTAT [Concomitant]
     Active Substance: FEBUXOSTAT
     Indication: Pre-existing disease
     Dosage: 20 MG
     Route: 048
     Dates: start: 20201123
  8. INDAPAMIDE [Concomitant]
     Active Substance: INDAPAMIDE
     Indication: Cardiac failure
     Dosage: 1.5 MG
     Route: 048
     Dates: start: 20201119
  9. SPIRONOLACTONE [Concomitant]
     Active Substance: SPIRONOLACTONE
     Indication: Pre-existing disease
     Dosage: 20 MG
     Route: 048
     Dates: start: 20201119
  10. METOPROLOL [Concomitant]
     Active Substance: METOPROLOL
     Indication: Cardiac failure
     Dosage: 23.75 MG
     Route: 065
     Dates: start: 20201119
  11. PANTOPRAZOLE SODIUM ANHYDROUS [Concomitant]
     Active Substance: PANTOPRAZOLE SODIUM ANHYDROUS
     Indication: Pre-existing disease
     Dosage: 40 MG
     Route: 065
     Dates: start: 20201119, end: 20201127
  12. DICLOFENAC DIETHYLAMINE [Concomitant]
     Active Substance: DICLOFENAC DIETHYLAMINE
     Indication: Pre-existing disease
     Dosage: 20 G (APPLICATION)
     Route: 061
     Dates: start: 20201120, end: 20201120
  13. RIVAROXABAN [Concomitant]
     Active Substance: RIVAROXABAN
     Indication: Cardiac failure
     Dosage: 20 MG
     Route: 048
     Dates: start: 20201119, end: 20201127
  14. FUROSEMIDE [Concomitant]
     Active Substance: FUROSEMIDE
     Indication: Cardiac failure
     Dosage: 20 MG
     Route: 048
     Dates: start: 20201119, end: 20201122
  15. ASPIRIN [Concomitant]
     Active Substance: ASPIRIN
     Indication: Cardiac failure
     Dosage: 100 MG
     Route: 048
     Dates: start: 20201119, end: 20201120
  16. CLOPIDOGREL [Concomitant]
     Active Substance: CLOPIDOGREL BISULFATE
     Indication: Cardiac failure
     Dosage: 75 MG
     Route: 048
     Dates: start: 20201119, end: 20201120
  17. ATORVASTATIN CALCIUM [Concomitant]
     Active Substance: ATORVASTATIN CALCIUM
     Indication: Cardiac failure
     Dosage: 20 MG
     Route: 048
     Dates: start: 20201119, end: 20201120

REACTIONS (6)
  - Pulmonary arterial hypertension [Unknown]
  - Pericardial effusion [Unknown]
  - Hypokalaemia [Recovering/Resolving]
  - Hair disorder [Recovered/Resolved]
  - Incorrect dose administered [Unknown]
  - Wrong technique in product usage process [Unknown]

NARRATIVE: CASE EVENT DATE: 20201120
